FAERS Safety Report 24300221 (Version 2)
Quarter: 2024Q4

REPORT INFORMATION
  Report Type: Report from Study
  Country: CA (occurrence: CA)
  Receive Date: 20240909
  Receipt Date: 20241025
  Transmission Date: 20250114
  Serious: Yes (Death, Hospitalization, Other)
  Sender: HLS THERAPEUTICS
  Company Number: CA-HLS-202402177

PATIENT
  Age: 84 Year
  Sex: Female

DRUGS (10)
  1. CLOZARIL [Suspect]
     Active Substance: CLOZAPINE
     Indication: Schizophrenia
     Route: 048
     Dates: start: 20010126
  2. CLOZARIL [Suspect]
     Active Substance: CLOZAPINE
     Indication: Schizophrenia
     Route: 048
     Dates: end: 20221031
  3. CLOZARIL [Suspect]
     Active Substance: CLOZAPINE
     Indication: Schizophrenia
     Route: 048
     Dates: start: 20221031, end: 20240824
  4. Methotrimprazine [Concomitant]
     Indication: Product used for unknown indication
     Route: 065
  5. HYDROMORPHONE [Concomitant]
     Active Substance: HYDROMORPHONE
     Indication: Product used for unknown indication
     Route: 065
  6. MIDAZOLAM [Concomitant]
     Active Substance: MIDAZOLAM
     Indication: Product used for unknown indication
     Route: 065
  7. Lipton [Concomitant]
     Indication: Product used for unknown indication
     Route: 065
     Dates: start: 20210120
  8. MELATONIN [Concomitant]
     Active Substance: MELATONIN
     Dosage: 5MG
     Route: 065
  9. CITALOPRAM [Concomitant]
     Active Substance: CITALOPRAM
     Indication: Product used for unknown indication
     Route: 065
     Dates: start: 20210601
  10. PREDNISONE [Concomitant]
     Active Substance: PREDNISONE
     Indication: Product used for unknown indication
     Route: 065
     Dates: start: 202408

REACTIONS (12)
  - Decreased appetite [Unknown]
  - Death [Fatal]
  - Weight bearing difficulty [Recovered/Resolved]
  - Hypophagia [Unknown]
  - Hip fracture [Unknown]
  - Salivary hypersecretion [Unknown]
  - Hemiparesis [Unknown]
  - Pain [Recovered/Resolved]
  - Wrong technique in product usage process [Unknown]
  - Restlessness [Unknown]
  - Occipital lobe stroke [Unknown]
  - Fall [Unknown]

NARRATIVE: CASE EVENT DATE: 20240708
